FAERS Safety Report 17042200 (Version 1)
Quarter: 2019Q4

REPORT INFORMATION
  Report Type: Spontaneous
  Country: US (occurrence: US)
  Receive Date: 20191118
  Receipt Date: 20191118
  Transmission Date: 20200122
  Serious: Yes (Hospitalization)
  Sender: FDA-Public Use
  Company Number: US-ROCHE-2466439

PATIENT
  Sex: Female

DRUGS (1)
  1. LUCENTIS [Suspect]
     Active Substance: RANIBIZUMAB
     Indication: PRODUCT USED FOR UNKNOWN INDICATION
     Dosage: INJECT 1 SYRINGE INTRAVITREALLY INTO EACH EYE EVERY 4 WEEKS?PREFILLED SYRINGE
     Route: 050
     Dates: start: 20190812

REACTIONS (1)
  - Bacteraemia [Recovered/Resolved]
